FAERS Safety Report 25463942 (Version 1)
Quarter: 2025Q2

REPORT INFORMATION
  Report Type: Spontaneous
  Country: AT (occurrence: AT)
  Receive Date: 20250621
  Receipt Date: 20250621
  Transmission Date: 20250716
  Serious: Yes (Hospitalization, Other)
  Sender: ALEXION PHARMACEUTICALS
  Company Number: AT-ASTRAZENECA-202506EEA011866AT

PATIENT
  Age: 44 Year

DRUGS (2)
  1. IMFINZI [Suspect]
     Active Substance: DURVALUMAB
     Indication: Bladder transitional cell carcinoma
     Route: 065
  2. TENOFOVIR [Concomitant]
     Active Substance: TENOFOVIR
     Indication: HIV infection
     Route: 065

REACTIONS (4)
  - Ileus paralytic [Unknown]
  - Intestinal perforation [Unknown]
  - Weight decreased [Unknown]
  - Off label use [Unknown]
